FAERS Safety Report 10760779 (Version 1)
Quarter: 2015Q1

REPORT INFORMATION
  Report Type: Spontaneous
  Country: US (occurrence: None)
  Receive Date: 20150202
  Receipt Date: 20150202
  Transmission Date: 20150721
  Serious: Yes (Hospitalization, Other)
  Sender: FDA-Public Use
  Company Number: LH201500070

PATIENT
  Age: 1 Day

DRUGS (1)
  1. MAKENA [Suspect]
     Active Substance: HYDROXYPROGESTERONE CAPROATE
     Indication: EXPOSURE DURING PREGNANCY
     Dates: start: 20141030, end: 20141230

REACTIONS (5)
  - Maternal drugs affecting foetus [None]
  - Small for dates baby [None]
  - Premature baby [None]
  - Caesarean section [None]
  - Respiratory disorder neonatal [None]

NARRATIVE: CASE EVENT DATE: 20150103
